FAERS Safety Report 13998792 (Version 2)
Quarter: 2018Q1

REPORT INFORMATION
  Report Type: Not Available
  Country: US (occurrence: US)
  Receive Date: 20170921
  Receipt Date: 20180121
  Transmission Date: 20180508
  Serious: No
  Sender: FDA-Public Use
  Company Number: US-NEUROCRINE BIOSCIENCES INC.-2017NBI00622

PATIENT
  Age: 72 Year
  Sex: Female

DRUGS (20)
  1. MELATONIN [Concomitant]
     Active Substance: MELATONIN
  2. TRAZODONE [Concomitant]
     Active Substance: TRAZODONE HYDROCHLORIDE
  3. VITAMIN C [Concomitant]
     Active Substance: ASCORBIC ACID
  4. CLONICINE [Concomitant]
  5. LEXAPRO [Concomitant]
     Active Substance: ESCITALOPRAM OXALATE
  6. VITAMIN D [Concomitant]
     Active Substance: CHOLECALCIFEROL
  7. INGREZZA [Suspect]
     Active Substance: VALBENAZINE
     Indication: PRODUCT USED FOR UNKNOWN INDICATION
     Route: 048
     Dates: start: 20170721, end: 20170726
  8. BIOTIN [Concomitant]
     Active Substance: BIOTIN
  9. CLONAZEPAM. [Concomitant]
     Active Substance: CLONAZEPAM
  10. VITAMIN B [Concomitant]
     Active Substance: VITAMIN B
  11. CIPROFLOXACIN. [Concomitant]
     Active Substance: CIPROFLOXACIN
  12. MORPHINE [Concomitant]
     Active Substance: MORPHINE
  13. PROPRANOLOL [Concomitant]
     Active Substance: PROPRANOLOL HYDROCHLORIDE
  14. REXULTI [Concomitant]
     Active Substance: BREXPIPRAZOLE
  15. IBUPROFEN. [Concomitant]
     Active Substance: IBUPROFEN
  16. OXYCODINE [Concomitant]
  17. ZOLPIDEM [Concomitant]
     Active Substance: ZOLPIDEM\ZOLPIDEM TARTRATE
  18. SENNA S [Concomitant]
     Active Substance: DOCUSATE SODIUM\SENNA LEAF
  19. LEVOTHYROXINE. [Concomitant]
     Active Substance: LEVOTHYROXINE
  20. LOSARTAN. [Concomitant]
     Active Substance: LOSARTAN

REACTIONS (7)
  - Feeling abnormal [Unknown]
  - Fatigue [Recovered/Resolved]
  - Incontinence [Recovered/Resolved]
  - Ataxia [Recovered/Resolved]
  - Somnolence [Unknown]
  - Gait disturbance [Unknown]
  - Confusional state [Unknown]

NARRATIVE: CASE EVENT DATE: 201707
